FAERS Safety Report 22338357 (Version 1)
Quarter: 2023Q2

REPORT INFORMATION
  Report Type: Spontaneous
  Country: US (occurrence: None)
  Receive Date: 20230518
  Receipt Date: 20230518
  Transmission Date: 20230721
  Serious: No
  Sender: FDA-Public Use
  Company Number: US-ROCHE-3248866

PATIENT
  Age: 62 Year
  Sex: Female
  Weight: 78 kg

DRUGS (3)
  1. ACTEMRA [Suspect]
     Active Substance: TOCILIZUMAB
     Indication: Rheumatoid arthritis
     Route: 058
     Dates: start: 20221206
  2. ACTEMRA [Suspect]
     Active Substance: TOCILIZUMAB
  3. ASPIRIN [Concomitant]
     Active Substance: ASPIRIN

REACTIONS (7)
  - Device issue [Unknown]
  - Product deposit [Unknown]
  - Needle issue [Unknown]
  - Injury associated with device [Unknown]
  - Fatigue [Not Recovered/Not Resolved]
  - Illness [Not Recovered/Not Resolved]
  - Pain [Not Recovered/Not Resolved]

NARRATIVE: CASE EVENT DATE: 20221221
